FAERS Safety Report 25457898 (Version 1)
Quarter: 2025Q2

REPORT INFORMATION
  Report Type: Spontaneous
  Country: US (occurrence: US)
  Receive Date: 20250620
  Receipt Date: 20250620
  Transmission Date: 20250716
  Serious: No
  Sender: AMGEN
  Company Number: US-AMGEN-USASP2025120449

PATIENT
  Age: 66 Year
  Sex: Female

DRUGS (1)
  1. REPATHA [Suspect]
     Active Substance: EVOLOCUMAB
     Indication: Product used for unknown indication
     Route: 065

REACTIONS (3)
  - Accidental exposure to product [Unknown]
  - Incorrect disposal of product [Unknown]
  - Injection site pain [Unknown]

NARRATIVE: CASE EVENT DATE: 20250615
